FAERS Safety Report 5373289-2 (Version None)
Quarter: 2007Q2

REPORT INFORMATION
  Report Type: 
  Country: None (occurrence: None)
  Receive Date: 20070626
  Receipt Date: 20070626
  Transmission Date: 20071010
  Serious: Yes (Other)
  Sender: FDA-Public Use
  Company Number: None

PATIENT
  Age: 45 Year
  Sex: Female
  Weight: 68.0396 kg

DRUGS (1)
  1. SERTRALINE [Suspect]
     Indication: ANXIETY
     Dosage: 50MG DAILY PO
     Route: 048
     Dates: start: 20070101, end: 20070331

REACTIONS (3)
  - ANXIETY [None]
  - DISEASE RECURRENCE [None]
  - HEADACHE [None]
